FAERS Safety Report 5754117-X (Version None)
Quarter: 2008Q2

REPORT INFORMATION
  Report Type: 
  Country: None (occurrence: None)
  Receive Date: 20080530
  Receipt Date: 20080522
  Transmission Date: 20081010
  Serious: Yes (Other)
  Sender: FDA-Public Use
  Company Number: CN-ROCHE-563640

PATIENT
  Age: 37 Year
  Sex: Female

DRUGS (4)
  1. CELLCEPT [Suspect]
     Route: 065
     Dates: start: 20040101
  2. CYCLOSPORINE [Concomitant]
     Dates: start: 20040101, end: 20080101
  3. PREDNISONE TAB [Concomitant]
     Dates: start: 20040101
  4. RAPAMUNE [Concomitant]
     Dosage: FORM: ORAL SOLUTION
     Route: 048
     Dates: start: 20080101

REACTIONS (1)
  - FIBROADENOMA OF BREAST [None]
